FAERS Safety Report 6539400-2 (Version None)
Quarter: 2010Q1

REPORT INFORMATION
  Report Type: 
  Country: None (occurrence: None)
  Receive Date: 20100112
  Receipt Date: 20091229
  Transmission Date: 20100710
  Serious: Yes (Hospitalization, Other)
  Sender: FDA-Public Use
  Company Number: 430024J08USA

PATIENT
  Age: 44 Year
  Sex: Female
  Weight: 84 kg

DRUGS (5)
  1. NOVANTRONE [Suspect]
     Indication: MULTIPLE SCLEROSIS
     Dosage: 12 MG/M2, INTRAVENOUS (NOT OTHERWISE SPECIFIED)
     Route: 042
     Dates: start: 20071013, end: 20080401
  2. REBIF [Suspect]
     Indication: MULTIPLE SCLEROSIS
     Dosage: 44 MCG, 3 IN 1 WEEKS, SUBCUTANEOUS
     Route: 058
     Dates: start: 20070611, end: 20091001
  3. BACLOFEN [Concomitant]
  4. THYROID MEDICATION          (THYROID THERAPY) [Concomitant]
  5. OTHER UNSPECIFIED MEDICATIONS      (ALL OTHER THERAPEUTIC PRODUCTS) [Concomitant]

REACTIONS (5)
  - ABNORMAL BEHAVIOUR [None]
  - ASTHENIA [None]
  - CARDIAC DISORDER [None]
  - EJECTION FRACTION DECREASED [None]
  - WOUND INFECTION [None]
